FAERS Safety Report 4844801-4 (Version None)
Quarter: 2005Q4

REPORT INFORMATION
  Report Type: 
  Country: None (occurrence: None)
  Receive Date: 20051205
  Receipt Date: 20051123
  Transmission Date: 20060501
  Serious: Yes (Other)
  Sender: FDA-Public Use
  Company Number: US-BRISTOL-MYERS SQUIBB COMPANY-13193370

PATIENT
  Age: 50 Year
  Sex: Female

DRUGS (9)
  1. DIDANOSINE [Suspect]
  2. STAVUDINE [Suspect]
  3. ATAZANAVIR [Suspect]
  4. RITONAVIR [Suspect]
  5. INDINAVIR [Suspect]
  6. LAMIVUDINE [Suspect]
  7. NELFINAVIR [Suspect]
  8. SAQUINAVIR [Suspect]
  9. KALETRA [Suspect]

REACTIONS (4)
  - DRUG INEFFECTIVE [None]
  - ERYSIPELAS [None]
  - TREATMENT NONCOMPLIANCE [None]
  - XERODERMA [None]
